FAERS Safety Report 7951212-1 (Version None)
Quarter: 2011Q4

REPORT INFORMATION
  Report Type: 
  Country: None (occurrence: None)
  Receive Date: 20111201
  Receipt Date: 20111129
  Transmission Date: 20120403
  Serious: Yes (Death, Other)
  Sender: FDA-Public Use
  Company Number: PHHY2011US68710

PATIENT
  Sex: Female

DRUGS (1)
  1. TOBI [Suspect]
     Indication: PULMONARY HYPERTENSION
     Dosage: 300 MG, BID

REACTIONS (2)
  - CIRCULATORY COLLAPSE [None]
  - DEATH [None]
